FAERS Safety Report 16871126 (Version 7)
Quarter: 2020Q3

REPORT INFORMATION
  Report Type: Report from Study
  Country: None (occurrence: NL)
  Receive Date: 20190930
  Receipt Date: 20200922
  Transmission Date: 20201102
  Serious: Yes (Hospitalization, Other)
  Sender: FDA-Public Use
  Company Number: NL-ABBVIE-19K-114-2938306-00

PATIENT
  Sex: Female

DRUGS (8)
  1. MEBEVERINE [Concomitant]
     Active Substance: MEBEVERINE
     Indication: PRODUCT USED FOR UNKNOWN INDICATION
  2. LEVODOPA/CARBIDOPA [Concomitant]
     Active Substance: CARBIDOPA\LEVODOPA
     Indication: PRODUCT USED FOR UNKNOWN INDICATION
  3. DUODOPA [Suspect]
     Active Substance: CARBIDOPA\LEVODOPA
     Dosage: CONTINUOUS DOSE DECREASED?MD: 8.5; CD: 3.5; ED: 2.0?REMAINS AT 16 HOURS
     Route: 050
     Dates: end: 20200917
  4. MOVICOLON [Concomitant]
     Active Substance: POLYETHYLENE GLYCOL 3350\POTASSIUM CHLORIDE\SODIUM BICARBONATE\SODIUM CHLORIDE
     Indication: ABNORMAL FAECES
  5. DUODOPA [Suspect]
     Active Substance: CARBIDOPA\LEVODOPA
     Indication: PARKINSON^S DISEASE
     Dosage: 16 HOUR ADMINISTRATION
     Route: 050
     Dates: start: 20190916
  6. PANTOPRAZOLE [Concomitant]
     Active Substance: PANTOPRAZOLE
     Indication: PRODUCT USED FOR UNKNOWN INDICATION
  7. NEUPRO [Concomitant]
     Active Substance: ROTIGOTINE
     Indication: PRODUCT USED FOR UNKNOWN INDICATION
  8. LEVODOPA/CARBIDOPA RETARD [Concomitant]
     Active Substance: CARBIDOPA\LEVODOPA
     Indication: PARKINSON^S DISEASE
     Dosage: DURING NIGHT

REACTIONS (37)
  - Affective disorder [Not Recovered/Not Resolved]
  - Abdominal distension [Not Recovered/Not Resolved]
  - Abnormal faeces [Unknown]
  - Decreased appetite [Not Recovered/Not Resolved]
  - Stoma site erythema [Recovering/Resolving]
  - Procedural pain [Not Recovered/Not Resolved]
  - Stoma site extravasation [Not Recovered/Not Resolved]
  - Reduced facial expression [Not Recovered/Not Resolved]
  - Hypokinesia [Not Recovered/Not Resolved]
  - Stoma site pain [Not Recovered/Not Resolved]
  - Constipation [Not Recovered/Not Resolved]
  - Mobility decreased [Not Recovered/Not Resolved]
  - Hepatomegaly [Not Recovered/Not Resolved]
  - Muscle rigidity [Not Recovered/Not Resolved]
  - Fatigue [Not Recovered/Not Resolved]
  - Mobility decreased [Not Recovered/Not Resolved]
  - On and off phenomenon [Not Recovered/Not Resolved]
  - Peritonitis [Recovering/Resolving]
  - Abnormal faeces [Not Recovered/Not Resolved]
  - Pain [Not Recovered/Not Resolved]
  - Tension [Not Recovered/Not Resolved]
  - Urinary tract infection [Recovered/Resolved]
  - Intra-abdominal fluid collection [Not Recovered/Not Resolved]
  - Weight increased [Not Recovered/Not Resolved]
  - Insomnia [Not Recovered/Not Resolved]
  - General physical health deterioration [Not Recovered/Not Resolved]
  - Pneumoperitoneum [Not Recovered/Not Resolved]
  - Gait disturbance [Not Recovered/Not Resolved]
  - Arthritis [Recovering/Resolving]
  - Emotional disorder [Not Recovered/Not Resolved]
  - Stoma site discharge [Recovering/Resolving]
  - Neurological procedural complication [Unknown]
  - Device loosening [Unknown]
  - Malaise [Not Recovered/Not Resolved]
  - Dyskinesia [Recovering/Resolving]
  - Peptic ulcer [Not Recovered/Not Resolved]
  - Bradykinesia [Not Recovered/Not Resolved]

NARRATIVE: CASE EVENT DATE: 2019
